FAERS Safety Report 13166863 (Version 1)
Quarter: 2017Q1

REPORT INFORMATION
  Report Type: Spontaneous
  Country: US (occurrence: US)
  Receive Date: 20170127
  Receipt Date: 20170127
  Transmission Date: 20170428
  Serious: Yes (Hospitalization)
  Sender: FDA-Public Use
  Company Number: None

PATIENT
  Age: 58 Year
  Sex: Male

DRUGS (20)
  1. ASPIRIN LOW DOSE [Concomitant]
     Active Substance: ASPIRIN
  2. NATEGLINIDE. [Concomitant]
     Active Substance: NATEGLINIDE
  3. PREDNISONE. [Concomitant]
     Active Substance: PREDNISONE
  4. PREDNISONE. [Suspect]
     Active Substance: PREDNISONE
     Indication: HEART TRANSPLANT
     Dosage: 10 MG BID OR AS DIRECTED PO WITH FOOD OR SNACK
     Route: 048
  5. CLOTRIMAZOLE. [Concomitant]
     Active Substance: CLOTRIMAZOLE
  6. ESCITALOPRAM [Concomitant]
     Active Substance: ESCITALOPRAM OXALATE
  7. LANTUS [Concomitant]
     Active Substance: INSULIN GLARGINE
  8. OYSCO 500 +D [Concomitant]
  9. SENNA LAXATIVE [Concomitant]
     Active Substance: SENNOSIDES
  10. MYCOPHENOLATE 250 MG [Suspect]
     Active Substance: MYCOPHENOLIC ACID
     Indication: HEART TRANSPLANT
     Route: 048
  11. TACROLIMUS. [Suspect]
     Active Substance: TACROLIMUS
     Indication: HEART TRANSPLANT
     Dosage: 4MG BID OR AS DIRECTED
  12. BUMETANIDE. [Concomitant]
     Active Substance: BUMETANIDE
  13. DOK CAP [Concomitant]
  14. PRAVASTATIN. [Concomitant]
     Active Substance: PRAVASTATIN
  15. RENVELA [Concomitant]
     Active Substance: SEVELAMER CARBONATE
  16. SMZ- TMP [Concomitant]
  17. SILDENAFIL 20MG TAB [Suspect]
     Active Substance: SILDENAFIL
     Indication: HEART TRANSPLANT
     Route: 048
  18. PANTAPRAZOLE [Concomitant]
     Active Substance: PANTOPRAZOLE SODIUM
  19. VITAMIN D [Concomitant]
     Active Substance: CHOLECALCIFEROL
  20. VITAMIN C [Concomitant]
     Active Substance: ASCORBIC ACID

REACTIONS (1)
  - Drug dose omission [None]

NARRATIVE: CASE EVENT DATE: 20170115
